FAERS Safety Report 14320669 (Version 1)
Quarter: 2017Q4

REPORT INFORMATION
  Report Type: Spontaneous
  Country: US (occurrence: US)
  Receive Date: 20171223
  Receipt Date: 20171223
  Transmission Date: 20180321
  Serious: No
  Sender: FDA-Public Use
  Company Number: US-009507513-1712USA011926

PATIENT
  Age: 1 Year
  Sex: Male

DRUGS (3)
  1. ANTIVENIN [Suspect]
     Active Substance: BLACK WIDOW SPIDER (LATRODECTUS MACTANS) IMMUNE GLOBULIN ANTIVENIN (EQUINE)
     Indication: VENOM POISONING
     Dosage: 2.5 ML, ONCE
     Route: 042
  2. SODIUM CHLORIDE. [Concomitant]
     Active Substance: SODIUM CHLORIDE
     Indication: MEDICATION DILUTION
     Dosage: 50 ML, ONCE
     Route: 042
  3. MORPHINE [Concomitant]
     Active Substance: MORPHINE
     Indication: VENOM POISONING
     Route: 042

REACTIONS (1)
  - Drug hypersensitivity [Unknown]
